FAERS Safety Report 23427911 (Version 2)
Quarter: 2025Q1

REPORT INFORMATION
  Report Type: Spontaneous
  Country: US (occurrence: US)
  Receive Date: 20240122
  Receipt Date: 20250303
  Transmission Date: 20250408
  Serious: No
  Sender: PFIZER
  Company Number: US-PFIZER INC-202300366121

PATIENT
  Age: 74 Year
  Sex: Female

DRUGS (4)
  1. IBRANCE [Suspect]
     Active Substance: PALBOCICLIB
     Indication: Breast cancer metastatic
     Route: 048
     Dates: start: 20230713
  2. IBRANCE [Suspect]
     Active Substance: PALBOCICLIB
     Route: 048
     Dates: start: 20221202
  3. FULVESTRANT [Concomitant]
     Active Substance: FULVESTRANT
     Indication: Breast cancer female
     Route: 030
     Dates: start: 20220713
  4. FEMARA [Concomitant]
     Active Substance: LETROZOLE
     Indication: Breast cancer metastatic
     Route: 048
     Dates: start: 20221202

REACTIONS (1)
  - Iron deficiency anaemia [Unknown]

NARRATIVE: CASE EVENT DATE: 20230224
